FAERS Safety Report 8301222-X (Version None)
Quarter: 2012Q2

REPORT INFORMATION
  Report Type: 
  Country: None (occurrence: None)
  Receive Date: 20120420
  Receipt Date: 20120420
  Transmission Date: 20120825
  Serious: Yes (Hospitalization, Disabling)
  Sender: FDA-Public Use
  Company Number: None

PATIENT
  Age: 18 Year
  Sex: Male
  Weight: 70.2 kg

DRUGS (1)
  1. VORICONAZOLE [Suspect]
     Indication: FUNGAL INFECTION
     Dosage: 250 MG
     Route: 042

REACTIONS (5)
  - HALLUCINATION [None]
  - TOXIC ENCEPHALOPATHY [None]
  - TOXICITY TO VARIOUS AGENTS [None]
  - AGITATION [None]
  - DYSARTHRIA [None]
